FAERS Safety Report 24553918 (Version 1)
Quarter: 2024Q4

REPORT INFORMATION
  Report Type: Report from Study
  Country: US (occurrence: US)
  Receive Date: 20241028
  Receipt Date: 20241028
  Transmission Date: 20250115
  Serious: No
  Sender: ROCHE
  Company Number: US-ROCHE-10000090813

PATIENT
  Age: 15 Year
  Sex: Male
  Weight: 53.52 kg

DRUGS (3)
  1. NUTROPIN AQ [Suspect]
     Active Substance: SOMATROPIN
     Indication: Short stature
     Dosage: 3 MG EVERY OTHER DAY WITH ALTERING WITH 3.1 MG EVERY OTHER DAY; DOSE IS 3.05 MG
     Route: 050
  2. NUTROPIN AQ [Suspect]
     Active Substance: SOMATROPIN
     Indication: Chronic kidney disease
     Route: 058
  3. ANASTROZOLE [Concomitant]
     Active Substance: ANASTROZOLE

REACTIONS (2)
  - Off label use [Unknown]
  - No adverse event [Unknown]
